FAERS Safety Report 24466091 (Version 1)
Quarter: 2024Q4

REPORT INFORMATION
  Report Type: Report from Study
  Country: US (occurrence: US)
  Receive Date: 20241018
  Receipt Date: 20241018
  Transmission Date: 20250115
  Serious: No
  Sender: ROCHE
  Company Number: US-ROCHE-3540834

PATIENT
  Age: 49 Year
  Sex: Female
  Weight: 122.47 kg

DRUGS (16)
  1. XOLAIR [Suspect]
     Active Substance: OMALIZUMAB
     Indication: Urticaria
     Dosage: LAST DATE OF TREATMENT: 29/MAR/2024
     Route: 058
  2. XOLAIR [Suspect]
     Active Substance: OMALIZUMAB
  3. ZYRTEC [Concomitant]
     Active Substance: CETIRIZINE HYDROCHLORIDE
  4. XYZAL [Concomitant]
     Active Substance: LEVOCETIRIZINE DIHYDROCHLORIDE
  5. SINGULAIR [Concomitant]
     Active Substance: MONTELUKAST SODIUM
  6. OMEPRAZOLE [Concomitant]
     Active Substance: OMEPRAZOLE
  7. ELIQUIS [Concomitant]
     Active Substance: APIXABAN
  8. MOMETASONE [Concomitant]
     Active Substance: MOMETASONE
  9. ADVAIR HFA [Concomitant]
     Active Substance: FLUTICASONE PROPIONATE\SALMETEROL XINAFOATE
  10. SYMBICORT [Concomitant]
     Active Substance: BUDESONIDE\FORMOTEROL FUMARATE DIHYDRATE
  11. VENTOLIN HFA [Concomitant]
     Active Substance: ALBUTEROL SULFATE
  12. MONTELUKAST [Concomitant]
     Active Substance: MONTELUKAST
  13. CELECOXIB [Concomitant]
     Active Substance: CELECOXIB
  14. MELOXICAM [Concomitant]
     Active Substance: MELOXICAM
  15. VENTOLIN [Concomitant]
     Active Substance: ALBUTEROL SULFATE
  16. ELIDEL [Concomitant]
     Active Substance: PIMECROLIMUS

REACTIONS (10)
  - Dyspnoea [Unknown]
  - Ocular hyperaemia [Unknown]
  - Headache [Unknown]
  - Eye pruritus [Unknown]
  - Nasal congestion [Unknown]
  - Upper-airway cough syndrome [Unknown]
  - Rhinorrhoea [Unknown]
  - Sneezing [Unknown]
  - Oropharyngeal pain [Unknown]
  - Dyspnoea exertional [Unknown]
